FAERS Safety Report 15058802 (Version 1)
Quarter: 2018Q2

REPORT INFORMATION
  Report Type: Spontaneous
  Country: ES (occurrence: ES)
  Receive Date: 20180625
  Receipt Date: 20180625
  Transmission Date: 20180711
  Serious: Yes (Life-Threatening, Hospitalization)
  Sender: FDA-Public Use
  Company Number: ES-B.I. PHARMACEUTICALS,INC./RIDGEFIELD-2018-12-002112

PATIENT
  Age: 71 Year
  Sex: Male
  Weight: 83 kg

DRUGS (2)
  1. DOCETAXEL ACCORD [Suspect]
     Active Substance: DOCETAXEL
     Indication: LUNG NEOPLASM MALIGNANT
     Dosage: 160MG/8ML CONCENTRATE FOR PERFUSION SOLUTION GENERIC PHARMACEUTICAL PRODUCT, 1 VIAL OF 8ML
     Route: 042
     Dates: start: 20180521, end: 20180521
  2. VARGATEF [Suspect]
     Active Substance: NINTEDANIB
     Indication: LUNG NEOPLASM MALIGNANT
     Dosage: VARGATEF 100MG SOFT CAPSULES 2 BOXES WITH 6 BLISTER PACKS OF 10 CAPSULES (120 CAPSULES)
     Route: 048
     Dates: start: 20180521, end: 20180527

REACTIONS (2)
  - Pancytopenia [Recovered/Resolved]
  - Gastroenteritis [Recovered/Resolved]

NARRATIVE: CASE EVENT DATE: 20180524
